FAERS Safety Report 11625256 (Version 1)
Quarter: 2015Q4

REPORT INFORMATION
  Report Type: Spontaneous
  Country: IT (occurrence: IT)
  Receive Date: 20151013
  Receipt Date: 20151013
  Transmission Date: 20160304
  Serious: Yes (Hospitalization)
  Sender: FDA-Public Use
  Company Number: IT-TEVA-600022ACC

PATIENT
  Age: 66 Year
  Sex: Male
  Weight: 80 kg

DRUGS (10)
  1. ENDOXAN BAXTER - 1 G POLVERE PER SOLUZIONE INIETTABILE - BAXTER S.P.A. [Suspect]
     Active Substance: CYCLOPHOSPHAMIDE
     Indication: NON-HODGKIN^S LYMPHOMA
     Dosage: 1493 MG CYCLICAL
     Route: 040
     Dates: start: 20150630, end: 20150630
  2. FLEBOCORTID RICHTER [Concomitant]
     Indication: PREMEDICATION
     Dosage: 250 MG
     Route: 042
     Dates: start: 20150630, end: 20150630
  3. ALLOPURINOL. [Concomitant]
     Active Substance: ALLOPURINOL
     Indication: HYPERURICAEMIA
     Dosage: 300 MG
     Route: 048
     Dates: start: 20150101, end: 20150709
  4. TERAPROST - 5 MG COMPRESSE [Concomitant]
     Indication: BENIGN PROSTATIC HYPERPLASIA
     Dosage: 5 MG
     Route: 048
     Dates: start: 20150101, end: 20150709
  5. PARACETAMOL [Concomitant]
     Active Substance: ACETAMINOPHEN
     Indication: PREMEDICATION
     Dosage: 1000 MG
     Route: 048
     Dates: start: 20150630, end: 20150630
  6. DOXORUBICINA TEVA - 2 MG/ML CONCENTRATO PER SOLUZIONE PER INFUSIONE [Suspect]
     Active Substance: DOXORUBICIN
     Indication: NON-HODGKIN^S LYMPHOMA
     Dosage: 99.5 MG CYCLICAL
     Route: 040
     Dates: start: 20150630, end: 20150630
  7. TRIMETON - 10 MG/1 ML SOLUZIONE INIETTABILE [Concomitant]
     Indication: PREMEDICATION
     Dosage: 10 MG
     Route: 042
     Dates: start: 20150630, end: 20150630
  8. VINCRISTINA TEVA ITALIA - 1 MG/ML SOLUZIONE INIETTABILE [Concomitant]
     Active Substance: VINCRISTINE SULFATE
     Indication: NON-HODGKIN^S LYMPHOMA
     Dosage: 2 MG
     Route: 042
     Dates: start: 20150630, end: 20150630
  9. ONDANSETRONE HIKMA - 8 MG/4 ML SOLUZIONE INIETTABILE [Concomitant]
     Indication: PREMEDICATION
     Dosage: 8 MG
     Route: 042
     Dates: start: 20150630, end: 20150630
  10. MABTHERA - 500 MG 50 ML [Concomitant]
     Indication: NON-HODGKIN^S LYMPHOMA
     Dosage: 746.3 MG
     Route: 042
     Dates: start: 20150630, end: 20150630

REACTIONS (1)
  - Febrile neutropenia [Recovered/Resolved]

NARRATIVE: CASE EVENT DATE: 20150709
